FAERS Safety Report 7914452-3 (Version None)
Quarter: 2011Q4

REPORT INFORMATION
  Report Type: 
  Country: None (occurrence: None)
  Receive Date: 20111115
  Receipt Date: 20111102
  Transmission Date: 20120403
  Serious: No
  Sender: FDA-Public Use
  Company Number: US-B.I. PHARMACEUTICALS,INC./RIDGEFIELD-2011-BP-25503BP

PATIENT
  Sex: Male

DRUGS (3)
  1. METHIMAZOLE [Concomitant]
     Indication: HYPERTHYROIDISM
     Dosage: 2.5 MG
     Route: 048
  2. FISH OIL [Concomitant]
     Indication: SUPPLEMENTATION THERAPY
     Dosage: 1000 MG
     Route: 048
  3. PRADAXA [Suspect]
     Indication: ATRIAL FIBRILLATION
     Dosage: 300 MG
     Route: 048
     Dates: start: 20110901

REACTIONS (1)
  - THROAT IRRITATION [None]
